FAERS Safety Report 17016112 (Version 1)
Quarter: 2019Q4

REPORT INFORMATION
  Report Type: Report from Study
  Country: US (occurrence: US)
  Receive Date: 20191111
  Receipt Date: 20191111
  Transmission Date: 20200122
  Serious: Yes (Other)
  Sender: FDA-Public Use
  Company Number: PHHY2018US009182

PATIENT
  Age: 57 Year
  Sex: Female

DRUGS (1)
  1. GILENYA [Suspect]
     Active Substance: FINGOLIMOD HYDROCHLORIDE
     Indication: MULTIPLE SCLEROSIS
     Dosage: UNK, QD
     Route: 048

REACTIONS (17)
  - Bradyphrenia [Unknown]
  - Stress [Unknown]
  - Retinal disorder [Unknown]
  - Pressure of speech [Unknown]
  - Anxiety [Unknown]
  - Balance disorder [Unknown]
  - Alexithymia [Unknown]
  - Sleep disorder [Unknown]
  - Grip strength decreased [Recovered/Resolved]
  - Lymphocyte count decreased [Unknown]
  - Heart rate increased [Unknown]
  - Disturbance in attention [Unknown]
  - Blood pressure increased [Unknown]
  - Cough [Recovered/Resolved]
  - Pain [Recovered/Resolved]
  - Contusion [Recovered/Resolved]
  - Urinary incontinence [Unknown]

NARRATIVE: CASE EVENT DATE: 20171204
